FAERS Safety Report 7142747-2 (Version None)
Quarter: 2010Q4

REPORT INFORMATION
  Report Type: 
  Country: None (occurrence: None)
  Receive Date: 20101207
  Receipt Date: 20101125
  Transmission Date: 20110411
  Serious: Yes (Other)
  Sender: FDA-Public Use
  Company Number: PHFR2010GB05628

PATIENT
  Sex: Female

DRUGS (1)
  1. ZOLEDRONATE [Suspect]
     Indication: SPINAL FRACTURE
     Dosage: 5 MG
     Dates: start: 20100602

REACTIONS (1)
  - HAEMATURIA [None]
